FAERS Safety Report 8163072-7 (Version None)
Quarter: 2012Q1

REPORT INFORMATION
  Report Type: 
  Country: None (occurrence: None)
  Receive Date: 20120224
  Receipt Date: 20120220
  Transmission Date: 20120608
  Serious: Yes (Other)
  Sender: FDA-Public Use
  Company Number: US-GLAXOSMITHKLINE-A0966561A

PATIENT
  Age: 54 Year
  Sex: Male

DRUGS (3)
  1. LITHIUM CARBONATE [Concomitant]
  2. KLONOPIN [Concomitant]
  3. LAMICTAL [Suspect]
     Indication: AFFECTIVE DISORDER
     Dosage: 50MG PER DAY
     Route: 048
     Dates: start: 20120127

REACTIONS (4)
  - FEELING ABNORMAL [None]
  - PANIC REACTION [None]
  - ANXIETY [None]
  - SUICIDAL IDEATION [None]
